FAERS Safety Report 10067236 (Version 1)
Quarter: 2014Q2

REPORT INFORMATION
  Report Type: Spontaneous
  Country: US (occurrence: None)
  Receive Date: 20140408
  Receipt Date: 20140408
  Transmission Date: 20141212
  Serious: Yes (Other)
  Sender: FDA-Public Use
  Company Number: None

PATIENT
  Age: 66 Year
  Sex: Female
  Weight: 81.65 kg

DRUGS (1)
  1. RESCULA [Suspect]
     Indication: GLAUCOMA
     Dosage: 1 DROP TWICE DAILY INTO THE EYE
     Dates: start: 20140310, end: 20140330

REACTIONS (3)
  - Arthralgia [None]
  - Arthralgia [None]
  - Gait disturbance [None]
